FAERS Safety Report 11613997 (Version 1)
Quarter: 2015Q4

REPORT INFORMATION
  Report Type: Report from Study
  Country: US (occurrence: US)
  Receive Date: 20151008
  Receipt Date: 20151008
  Transmission Date: 20160304
  Serious: Yes (Hospitalization, Other)
  Sender: FDA-Public Use
  Company Number: US-CELGENE-163-21880-12120895

PATIENT

DRUGS (5)
  1. REVLIMID [Suspect]
     Active Substance: LENALIDOMIDE
     Indication: PLASMA CELL MYELOMA
     Route: 048
  2. DEXAMETHASONE. [Suspect]
     Active Substance: DEXAMETHASONE
     Route: 048
  3. REVLIMID [Suspect]
     Active Substance: LENALIDOMIDE
     Route: 048
  4. CARFILZOMIB [Suspect]
     Active Substance: CARFILZOMIB
     Indication: PLASMA CELL MYELOMA
     Dosage: 20/36 MG/M2
     Route: 041
  5. DEXAMETHASONE. [Suspect]
     Active Substance: DEXAMETHASONE
     Indication: PLASMA CELL MYELOMA
     Route: 041

REACTIONS (33)
  - Thrombocytopenia [Unknown]
  - Neuropathy peripheral [Unknown]
  - Skin disorder [Unknown]
  - Cardiac disorder [Unknown]
  - Hypophosphataemia [Unknown]
  - Alanine aminotransferase increased [Unknown]
  - Metabolic disorder [Unknown]
  - Inner ear disorder [Unknown]
  - Angiopathy [Unknown]
  - Haemorrhage [Unknown]
  - Syncope [Unknown]
  - Infusion related reaction [Unknown]
  - Anaemia [Unknown]
  - Rash [Unknown]
  - Infection [Unknown]
  - Hypertension [Unknown]
  - Renal impairment [Unknown]
  - Genitourinary symptom [Unknown]
  - Gastrointestinal disorder [Unknown]
  - Embolism venous [Unknown]
  - Lymphopenia [Unknown]
  - Neutropenia [Unknown]
  - Hepatobiliary disease [Unknown]
  - Affective disorder [Unknown]
  - Leukopenia [Unknown]
  - Unevaluable event [Unknown]
  - Endocrine disorder [Unknown]
  - Eye disorder [Unknown]
  - Cardiac failure congestive [Unknown]
  - Musculoskeletal disorder [Unknown]
  - Lung disorder [Unknown]
  - Anxiety [Unknown]
  - Cognitive disorder [Unknown]
